FAERS Safety Report 6346190-5 (Version None)
Quarter: 2009Q3

REPORT INFORMATION
  Report Type: 
  Country: None (occurrence: None)
  Receive Date: 20090909
  Receipt Date: 20061207
  Transmission Date: 20100115
  Serious: Yes (Hospitalization)
  Sender: FDA-Public Use
  Company Number: NL-MEDIMMUNE-MEDI-0008840

PATIENT

DRUGS (2)
  1. SYNAGIS [Suspect]
  2. ANTIBIOTIC [Concomitant]

REACTIONS (2)
  - OSTEITIS [None]
  - PYREXIA [None]
